FAERS Safety Report 4609747-5 (Version None)
Quarter: 2005Q1

REPORT INFORMATION
  Report Type: 
  Country: None (occurrence: None)
  Receive Date: 20050314
  Receipt Date: 20040625
  Transmission Date: 20050727
  Serious: No
  Sender: FDA-Public Use
  Company Number: 8382

PATIENT
  Age: 12 Year
  Sex: Female

DRUGS (1)
  1. ACYCLOVIR [Suspect]

REACTIONS (1)
  - HEPATITIS [None]
